FAERS Safety Report 4917110-2 (Version None)
Quarter: 2006Q1

REPORT INFORMATION
  Report Type: 
  Country: None (occurrence: None)
  Receive Date: 20060221
  Receipt Date: 20060208
  Transmission Date: 20060701
  Serious: Yes (Death)
  Sender: FDA-Public Use
  Company Number: FR-BRISTOL-MYERS SQUIBB COMPANY-13278197

PATIENT
  Age: 44 Year
  Sex: Male

DRUGS (5)
  1. ABILIFY [Suspect]
     Indication: SCHIZOPHRENIA
     Route: 048
     Dates: end: 20060130
  2. RISPERDAL [Concomitant]
  3. EFFEXOR [Concomitant]
  4. IMOVANE [Concomitant]
  5. SERESTA [Concomitant]

REACTIONS (1)
  - DEATH [None]
